FAERS Safety Report 6696571-5 (Version None)
Quarter: 2010Q2

REPORT INFORMATION
  Report Type: 
  Country: None (occurrence: None)
  Receive Date: 20100421
  Receipt Date: 20091222
  Transmission Date: 20101027
  Serious: No
  Sender: FDA-Public Use
  Company Number: US-000034

PATIENT
  Sex: Female

DRUGS (3)
  1. KUVAN [Suspect]
     Indication: PHENYLKETONURIA
     Dosage: (1800 MG ORAL)
     Route: 048
     Dates: start: 20091102, end: 20091130
  2. SEROQUEL [Concomitant]
  3. NAVANE /00099101/ [Concomitant]

REACTIONS (7)
  - ABNORMAL BEHAVIOUR [None]
  - ACTIVITIES OF DAILY LIVING IMPAIRED [None]
  - AGGRESSION [None]
  - CONFUSIONAL STATE [None]
  - DECREASED INTEREST [None]
  - SCHIZOPHRENIA [None]
  - SOMNOLENCE [None]
